FAERS Safety Report 5314573-8 (Version None)
Quarter: 2007Q2

REPORT INFORMATION
  Report Type: 
  Country: None (occurrence: None)
  Receive Date: 20070502
  Receipt Date: 20070426
  Transmission Date: 20071010
  Serious: Yes (Life-Threatening)
  Sender: FDA-Public Use
  Company Number: PK-AVENTIS-200713698GDDC

PATIENT
  Age: 68 Year
  Sex: Male
  Weight: 63 kg

DRUGS (3)
  1. LANTUS [Suspect]
     Route: 058
     Dates: start: 20050401, end: 20070426
  2. HUMALOG                            /00030501/ [Concomitant]
     Dosage: DOSE: 8 + 8 + 6
     Route: 058
     Dates: start: 20050501, end: 20070401
  3. LOPRIN [Concomitant]
     Route: 048

REACTIONS (1)
  - LOSS OF CONSCIOUSNESS [None]
